FAERS Safety Report 13552231 (Version 2)
Quarter: 2017Q2

REPORT INFORMATION
  Report Type: Spontaneous
  Country: GB (occurrence: GB)
  Receive Date: 20170516
  Receipt Date: 20170530
  Transmission Date: 20170830
  Serious: Yes (Hospitalization, Other)
  Sender: FDA-Public Use
  Company Number: GB-MYLANLABS-2017M1029430

PATIENT

DRUGS (1)
  1. CLOZARIL [Suspect]
     Active Substance: CLOZAPINE
     Indication: SCHIZOPHRENIA
     Dosage: UNK
     Route: 048
     Dates: start: 20130814, end: 20170506

REACTIONS (7)
  - Diarrhoea [Recovering/Resolving]
  - Blood test abnormal [Unknown]
  - Urosepsis [Recovering/Resolving]
  - Nausea [Unknown]
  - Renal cyst [Unknown]
  - Malaise [Unknown]
  - Acute kidney injury [Recovering/Resolving]

NARRATIVE: CASE EVENT DATE: 2017
